FAERS Safety Report 9775547 (Version 1)
Quarter: 2013Q4

REPORT INFORMATION
  Report Type: Spontaneous
  Country: US (occurrence: US)
  Receive Date: 20131220
  Receipt Date: 20131220
  Transmission Date: 20140711
  Serious: No
  Sender: FDA-Public Use
  Company Number: US-GALDERMA-US13003686

PATIENT
  Sex: Male

DRUGS (1)
  1. MIRVASO (BRIMONIDINE) TOPICAL GEL, 0.33% [Suspect]
     Dosage: 0.33%
     Route: 061

REACTIONS (5)
  - Rash erythematous [Not Recovered/Not Resolved]
  - Fear [Unknown]
  - Activities of daily living impaired [Recovered/Resolved]
  - Dermatitis [Not Recovered/Not Resolved]
  - Impaired work ability [None]
